FAERS Safety Report 8909486 (Version 2)
Quarter: 2013Q1

REPORT INFORMATION
  Report Type: Report from Study
  Country: DK (occurrence: DK)
  Receive Date: 20121115
  Receipt Date: 20130102
  Transmission Date: 20140127
  Serious: Yes (Hospitalization, Other)
  Sender: FDA-Public Use
  Company Number: DK-SANOFI-AVENTIS-2012SA082602

PATIENT
  Sex: 0

DRUGS (3)
  1. DOCETAXEL [Suspect]
     Indication: GASTRIC CANCER
     Route: 065
     Dates: start: 20090928
  2. OXALIPLATIN [Suspect]
     Indication: GASTRIC CANCER
     Route: 065
     Dates: start: 20090928
  3. CAPECITABINE [Suspect]
     Indication: GASTRIC CANCER
     Route: 065
     Dates: start: 20090928

REACTIONS (4)
  - Necrosis [Unknown]
  - Infection [Unknown]
  - Febrile neutropenia [Recovered/Resolved]
  - Febrile neutropenia [Recovered/Resolved]
